FAERS Safety Report 10338818 (Version 1)
Quarter: 2014Q3

REPORT INFORMATION
  Report Type: Spontaneous
  Country: DE (occurrence: DE)
  Receive Date: 20140724
  Receipt Date: 20140724
  Transmission Date: 20150326
  Serious: Yes (Other)
  Sender: FDA-Public Use
  Company Number: DE-MYLANLABS-2014S1016734

PATIENT
  Age: 74 Year
  Sex: Female

DRUGS (6)
  1. AMITRIPTYLINE [Suspect]
     Active Substance: AMITRIPTYLINE
     Indication: COMPLEX REGIONAL PAIN SYNDROME
     Route: 048
     Dates: start: 20140624
  2. L-THYROX [Concomitant]
     Indication: HYPOTHYROIDISM
  3. IBUPROFEN. [Concomitant]
     Active Substance: IBUPROFEN
     Indication: FRACTURE PAIN
  4. AMITRIPTYLINE [Suspect]
     Active Substance: AMITRIPTYLINE
     Indication: FRACTURE PAIN
     Route: 048
     Dates: start: 20140624
  5. LAXOBERAL [Concomitant]
     Active Substance: SODIUM PICOSULFATE
     Indication: DYSPEPSIA
  6. CORTICOSTEROID [Concomitant]
     Active Substance: CORTICOSTEROID NOS
     Indication: RASH
     Route: 061

REACTIONS (8)
  - Off label use [Unknown]
  - Vertigo [Recovered/Resolved]
  - Analgesic therapy [Not Recovered/Not Resolved]
  - Feeling drunk [Recovered/Resolved]
  - Rash [Recovering/Resolving]
  - Oropharyngeal pain [Recovered/Resolved]
  - Constipation [Not Recovered/Not Resolved]
  - Dysphagia [Recovered/Resolved]

NARRATIVE: CASE EVENT DATE: 20140624
